FAERS Safety Report 21471911 (Version 2)
Quarter: 2022Q4

REPORT INFORMATION
  Report Type: Spontaneous
  Country: BR (occurrence: BR)
  Receive Date: 20221018
  Receipt Date: 20221025
  Transmission Date: 20230112
  Serious: Yes (Other)
  Sender: FDA-Public Use
  Company Number: BR-PFIZER INC-202201212429

PATIENT
  Sex: Female

DRUGS (1)
  1. LORAZEPAM [Suspect]
     Active Substance: LORAZEPAM
     Dosage: 2 MG

REACTIONS (9)
  - Product use issue [Unknown]
  - Drug dependence [Unknown]
  - Seizure [Unknown]
  - Sleep deficit [Unknown]
  - Malaise [Not Recovered/Not Resolved]
  - Feeling of despair [Unknown]
  - Product supply issue [Unknown]
  - Panic disorder [Unknown]
  - Depression [Unknown]
